FAERS Safety Report 11512991 (Version 1)
Quarter: 2015Q3

REPORT INFORMATION
  Report Type: Spontaneous
  Country: US (occurrence: US)
  Receive Date: 20150903
  Receipt Date: 20150903
  Transmission Date: 20151125
  Serious: No
  Sender: FDA-Public Use
  Company Number: US-ELI_LILLY_AND_COMPANY-US201209005235

PATIENT
  Age: 69 Year
  Sex: Female

DRUGS (3)
  1. PLAVIX [Concomitant]
     Active Substance: CLOPIDOGREL BISULFATE
     Dosage: UNK, UNKNOWN
  2. CYMBALTA [Suspect]
     Active Substance: DULOXETINE HYDROCHLORIDE
     Indication: FATIGUE
     Dosage: 60 MG, UNKNOWN
  3. ASPIRIN. [Concomitant]
     Active Substance: ASPIRIN
     Dosage: UNK, UNKNOWN

REACTIONS (6)
  - Dizziness [Unknown]
  - Diabetes mellitus [Unknown]
  - Stomatitis [Recovered/Resolved]
  - Glossitis [Unknown]
  - Cheilitis [Unknown]
  - Off label use [Unknown]

NARRATIVE: CASE EVENT DATE: 201207
